FAERS Safety Report 12171849 (Version 3)
Quarter: 2016Q2

REPORT INFORMATION
  Report Type: Spontaneous
  Country: US (occurrence: US)
  Receive Date: 20160311
  Receipt Date: 20160426
  Transmission Date: 20160815
  Serious: Yes (Other)
  Sender: FDA-Public Use
  Company Number: PHHY2016US029828

PATIENT
  Age: 34 Year
  Sex: Female

DRUGS (6)
  1. BACLOFEN INTRATHECAL [Suspect]
     Active Substance: BACLOFEN
     Dosage: 255.07 UG, QD
     Route: 037
  2. BUPIVACAINE. [Suspect]
     Active Substance: BUPIVACAINE
     Indication: MUSCLE SPASTICITY
     Dosage: 17.005 MG, QD
     Route: 037
  3. TRAMADOL. [Suspect]
     Active Substance: TRAMADOL
     Indication: PRODUCT USED FOR UNKNOWN INDICATION
     Dosage: UNK
     Route: 048
  4. DIAZEPAM. [Suspect]
     Active Substance: DIAZEPAM
     Indication: PRODUCT USED FOR UNKNOWN INDICATION
     Dosage: UNK
     Route: 048
  5. MORPHINE [Suspect]
     Active Substance: MORPHINE
     Indication: MUSCLE SPASTICITY
     Dosage: 8.502 MG, QD
     Route: 037
  6. BACLOFEN INTRATHECAL [Suspect]
     Active Substance: BACLOFEN
     Indication: MUSCLE SPASTICITY
     Dosage: UNK
     Route: 037

REACTIONS (11)
  - No therapeutic response [Unknown]
  - Drug withdrawal syndrome [Unknown]
  - Malaise [Unknown]
  - Drug dependence [Unknown]
  - Arthritis [Unknown]
  - Respiratory arrest [Unknown]
  - Sensitivity to weather change [Unknown]
  - Multiple sclerosis relapse [Unknown]
  - Therapeutic response unexpected [Unknown]
  - Pain [Unknown]
  - Overdose [Unknown]

NARRATIVE: CASE EVENT DATE: 20060809
